FAERS Safety Report 19574636 (Version 1)
Quarter: 2021Q3

REPORT INFORMATION
  Report Type: Spontaneous
  Country: DE (occurrence: DE)
  Receive Date: 20210719
  Receipt Date: 20210719
  Transmission Date: 20211014
  Serious: Yes (Other)
  Sender: FDA-Public Use
  Company Number: DE-TEVA-2021-DE-1932756

PATIENT
  Age: 79 Year
  Sex: Male
  Weight: 90 kg

DRUGS (1)
  1. ESOMEPRAZOL [Suspect]
     Active Substance: ESOMEPRAZOLE
     Indication: ABDOMINAL DISCOMFORT
     Dosage: 40 MILLIGRAM DAILY; 2 X 20 MG
     Route: 048
     Dates: start: 20210621, end: 20210629

REACTIONS (4)
  - Exercise tolerance decreased [Recovered/Resolved]
  - Arrhythmia [Recovered/Resolved]
  - Headache [Recovered/Resolved]
  - Dizziness [Recovered/Resolved]

NARRATIVE: CASE EVENT DATE: 202106
